FAERS Safety Report 8123174-8 (Version None)
Quarter: 2012Q1

REPORT INFORMATION
  Report Type: 
  Country: None (occurrence: None)
  Receive Date: 20120208
  Receipt Date: 20120203
  Transmission Date: 20120608
  Serious: Yes (Death)
  Sender: FDA-Public Use
  Company Number: US-CELGENEUS-163-21880-12010387

PATIENT
  Sex: Male

DRUGS (7)
  1. PHOSPHO GEL [Concomitant]
     Route: 065
  2. REVLIMID [Suspect]
     Indication: MULTIPLE MYELOMA
     Dosage: 5 MILLIGRAM
     Route: 048
     Dates: start: 20110909, end: 20111201
  3. CALCITRIOL [Concomitant]
     Route: 065
  4. PROCRIT [Concomitant]
     Route: 065
  5. SIMVASTATIN [Concomitant]
     Indication: LIPIDS INCREASED
     Dosage: 20 MILLIGRAM
     Route: 065
  6. DEXAMETHASONE [Concomitant]
     Indication: MULTIPLE MYELOMA
     Dosage: 40 MILLIGRAM
     Route: 065
     Dates: start: 20110909, end: 20111201
  7. OMEPRAZOLE [Concomitant]
     Route: 065

REACTIONS (2)
  - SEPSIS [None]
  - RENAL FAILURE CHRONIC [None]
